FAERS Safety Report 5206692-1 (Version None)
Quarter: 2007Q1

REPORT INFORMATION
  Report Type: 
  Country: None (occurrence: None)
  Receive Date: 20070109
  Receipt Date: 20070102
  Transmission Date: 20070707
  Serious: Yes (Life-Threatening, Hospitalization)
  Sender: FDA-Public Use
  Company Number: GXKR2006FR08217

PATIENT
  Age: 47 Year
  Sex: Female

DRUGS (3)
  1. AMOXICILLIN [Suspect]
     Indication: INFECTION
     Dosage: ORAL
     Route: 048
  2. PREDNISOLONE [Concomitant]
  3. ACEBUTOLOL [Concomitant]

REACTIONS (5)
  - ACCIDENTAL EXPOSURE [None]
  - ANAPHYLACTIC SHOCK [None]
  - FACE OEDEMA [None]
  - MEDICATION ERROR [None]
  - SEDATION [None]
